FAERS Safety Report 7109745-6 (Version None)
Quarter: 2010Q4

REPORT INFORMATION
  Report Type: 
  Country: None (occurrence: None)
  Receive Date: 20101118
  Receipt Date: 20101112
  Transmission Date: 20110411
  Serious: Yes (Hospitalization)
  Sender: FDA-Public Use
  Company Number: US-RB-012471-10

PATIENT
  Age: 43 Year
  Sex: Male

DRUGS (3)
  1. SUBOXONE [Suspect]
     Indication: DRUG DEPENDENCE
     Route: 060
     Dates: start: 20100703, end: 20100703
  2. PHENOBARBITAL [Suspect]
     Indication: DRUG DETOXIFICATION
     Route: 048
     Dates: start: 20100703, end: 20100703
  3. ALCOHOL [Suspect]
     Indication: PRODUCT USED FOR UNKNOWN INDICATION
     Dosage: UNKNOWN DOSING DETAILS
     Route: 065

REACTIONS (2)
  - BRAIN INJURY [None]
  - UNRESPONSIVE TO STIMULI [None]
